FAERS Safety Report 25379366 (Version 2)
Quarter: 2025Q3

REPORT INFORMATION
  Report Type: Spontaneous
  Country: US (occurrence: US)
  Receive Date: 20250530
  Receipt Date: 20250801
  Transmission Date: 20251021
  Serious: No
  Sender: DAIICHI
  Company Number: US-DAIICHI SANKYO, INC.-DS-2025-143148-USAA

PATIENT
  Sex: Male

DRUGS (2)
  1. VANFLYTA [Suspect]
     Active Substance: QUIZARTINIB DIHYDROCHLORIDE
     Indication: Acute myeloid leukaemia
     Dosage: 35.4 MG (2 TABLETS X 17.7MG), QD (ON DAYS 6-19 EVERY 28 DAYS)
     Route: 048
     Dates: start: 20250506
  2. VANFLYTA [Suspect]
     Active Substance: QUIZARTINIB DIHYDROCHLORIDE
     Indication: Acute leukaemia in remission

REACTIONS (2)
  - Inappropriate schedule of product administration [Not Recovered/Not Resolved]
  - No adverse event [Unknown]
